FAERS Safety Report 10034063 (Version 1)
Quarter: 2014Q1

REPORT INFORMATION
  Report Type: Spontaneous
  Country: GB (occurrence: None)
  Receive Date: 20140320
  Receipt Date: 20140320
  Transmission Date: 20141002
  Serious: Yes (Other)
  Sender: FDA-Public Use
  Company Number: AUR-APL-2014-02730

PATIENT
  Sex: Male

DRUGS (2)
  1. FLUCONAZOLE [Suspect]
     Indication: ORAL CANDIDIASIS
  2. CLENIL MODULITE (BECLOMETASONE DIPROPIONATE) [Concomitant]

REACTIONS (5)
  - Asthenia [None]
  - Abasia [None]
  - Decreased appetite [None]
  - Dehydration [None]
  - Weight decreased [None]
